FAERS Safety Report 7514703-3 (Version None)
Quarter: 2011Q2

REPORT INFORMATION
  Report Type: 
  Country: None (occurrence: None)
  Receive Date: 20110422
  Receipt Date: 20110106
  Transmission Date: 20111010
  Serious: Yes (Other)
  Sender: FDA-Public Use
  Company Number: 2011AL000002

PATIENT
  Age: 78 Year
  Sex: Male

DRUGS (2)
  1. PIOGLITAZONE [Concomitant]
  2. FOLOTYN [Suspect]
     Indication: T-CELL LYMPHOMA
     Dosage: ;QW;IV
     Route: 042
     Dates: start: 20100301, end: 20100401

REACTIONS (4)
  - NASAL MUCOSAL DISORDER [None]
  - SKIN ULCER [None]
  - MUCOSAL INFLAMMATION [None]
  - EPISTAXIS [None]
